FAERS Safety Report 15383594 (Version 3)
Quarter: 2019Q1

REPORT INFORMATION
  Report Type: Report from Study
  Country: US (occurrence: US)
  Receive Date: 20180913
  Receipt Date: 20190110
  Transmission Date: 20190417
  Serious: Yes (Hospitalization)
  Sender: FDA-Public Use
  Company Number: US-ACTELION-A-US2018-168575

PATIENT
  Age: 66 Year
  Sex: Female
  Weight: 61.22 kg

DRUGS (3)
  1. VELETRI [Suspect]
     Active Substance: EPOPROSTENOL
     Indication: PULMONARY ARTERIAL HYPERTENSION
     Dosage: 8 NG/KG, PER MIN
     Route: 042
  2. VELETRI [Suspect]
     Active Substance: EPOPROSTENOL
     Dosage: 19.8 NG/KG, PER MIN
     Route: 042
  3. SILDENAFIL CITRATE. [Concomitant]
     Active Substance: SILDENAFIL CITRATE

REACTIONS (20)
  - Dry throat [Unknown]
  - Headache [Not Recovered/Not Resolved]
  - Decreased appetite [Recovered/Resolved]
  - Fatigue [Unknown]
  - Malaise [Unknown]
  - Erythema [Unknown]
  - Dyspnoea [Recovering/Resolving]
  - Colitis [Unknown]
  - Dyspnoea exertional [Unknown]
  - Dizziness [Recovered/Resolved]
  - Abdominal cavity drainage [Unknown]
  - Pain in jaw [Recovered/Resolved]
  - Diarrhoea [Unknown]
  - Skin irritation [Unknown]
  - Chest pain [Unknown]
  - Nausea [Recovered/Resolved]
  - Weight decreased [Unknown]
  - Fluid retention [Unknown]
  - Catheter site erythema [Recovered/Resolved]
  - Oropharyngeal pain [Unknown]
